FAERS Safety Report 14970252 (Version 7)
Quarter: 2018Q4

REPORT INFORMATION
  Report Type: Report from Study
  Country: US (occurrence: US)
  Receive Date: 20180604
  Receipt Date: 20181211
  Transmission Date: 20190204
  Serious: Yes (Other)
  Sender: FDA-Public Use
  Company Number: US-MALLINCKRODT-T201800875

PATIENT
  Sex: Female

DRUGS (5)
  1. REPOSITORY CORTICOTROPIN INJECTION [Suspect]
     Active Substance: CORTICOTROPIN
     Dosage: 80 UNITS/1 ML, EVERY 3 DAYS/EVERY 72 HOURS
     Route: 058
  2. REPOSITORY CORTICOTROPIN INJECTION [Suspect]
     Active Substance: CORTICOTROPIN
     Dosage: 80 UNITS/1 ML, EVERY 3 DAYS / EVERY 72 HOURS
     Route: 058
  3. REPOSITORY CORTICOTROPIN INJECTION [Suspect]
     Active Substance: CORTICOTROPIN
     Indication: SARCOIDOSIS
     Dosage: 80 UNITS/1 ML, EVERY 3 DAYS / EVERY 72 HOURS
     Route: 058
     Dates: start: 20160325
  4. REPOSITORY CORTICOTROPIN INJECTION [Suspect]
     Active Substance: CORTICOTROPIN
     Dosage: 80 UNITS/1 ML, EVERY 3 DAYS / EVERY 72 HOURS
     Route: 058
  5. OXYGEN. [Concomitant]
     Active Substance: OXYGEN
     Indication: PRODUCT USED FOR UNKNOWN INDICATION
     Dosage: 3 LPM, ALL DAY 24/7
     Route: 065

REACTIONS (24)
  - Impaired healing [Not Recovered/Not Resolved]
  - Increased appetite [Not Recovered/Not Resolved]
  - Product dose omission [Not Recovered/Not Resolved]
  - Macular degeneration [Not Recovered/Not Resolved]
  - Cataract operation [Unknown]
  - Knee deformity [Unknown]
  - Memory impairment [Not Recovered/Not Resolved]
  - Fatigue [Not Recovered/Not Resolved]
  - Dry mouth [Not Recovered/Not Resolved]
  - Laryngitis [Not Recovered/Not Resolved]
  - Cushingoid [Not Recovered/Not Resolved]
  - Cataract [Recovering/Resolving]
  - Scratch [Not Recovered/Not Resolved]
  - Dysphonia [Not Recovered/Not Resolved]
  - Wheezing [Not Recovered/Not Resolved]
  - Fluid retention [Not Recovered/Not Resolved]
  - Bipolar disorder [Not Recovered/Not Resolved]
  - Dyspnoea [Unknown]
  - Weight fluctuation [Not Recovered/Not Resolved]
  - Insomnia [Unknown]
  - Dependence on oxygen therapy [Not Recovered/Not Resolved]
  - Contusion [Not Recovered/Not Resolved]
  - Headache [Not Recovered/Not Resolved]
  - Injection site haemorrhage [Not Recovered/Not Resolved]
